FAERS Safety Report 4364351-1 (Version None)
Quarter: 2004Q2

REPORT INFORMATION
  Report Type: 
  Country: None (occurrence: None)
  Receive Date: 20040525
  Receipt Date: 20040326
  Transmission Date: 20050107
  Serious: No
  Sender: FDA-Public Use
  Company Number: US-BRISTOL-MYERS SQUIBB COMPANY-12542817

PATIENT
  Sex: Female

DRUGS (3)
  1. CYTOXAN [Suspect]
     Dates: start: 20040312, end: 20040312
  2. TAXOTERE [Suspect]
     Dates: start: 20040312, end: 20040312
  3. DOXIL [Suspect]
     Dates: start: 20040312, end: 20040312

REACTIONS (1)
  - BLOOD GLUCOSE INCREASED [None]
